FAERS Safety Report 4448910-3 (Version None)
Quarter: 2004Q3

REPORT INFORMATION
  Report Type: 
  Country: None (occurrence: None)
  Receive Date: 20040909
  Receipt Date: 20040830
  Transmission Date: 20050211
  Serious: Yes (Other)
  Sender: FDA-Public Use
  Company Number: 200414233BCC

PATIENT
  Age: 67 Year
  Sex: Female
  Weight: 65.7716 kg

DRUGS (7)
  1. PHILLIPS MILK OF MAGNESIA FRENCH VANILLA (MILK OF MAGNESIA) [Suspect]
     Indication: ANTACID THERAPY
     Dosage: SEE IMAGE ORAL
     Route: 048
     Dates: start: 20040825
  2. PHILLIPS MILK OF MAGNESIA FRENCH VANILLA (MILK OF MAGNESIA) [Suspect]
     Indication: LAXATIVE SUPPORTIVE CARE
     Dosage: SEE IMAGE ORAL
     Route: 048
     Dates: start: 20040825
  3. PHILLIPS MILK OF MAGNESIA FRENCH VANILLA (MILK OF MAGNESIA) [Suspect]
     Indication: ANTACID THERAPY
     Dosage: SEE IMAGE ORAL
     Route: 048
     Dates: start: 20040827
  4. PHILLIPS MILK OF MAGNESIA FRENCH VANILLA (MILK OF MAGNESIA) [Suspect]
     Indication: LAXATIVE SUPPORTIVE CARE
     Dosage: SEE IMAGE ORAL
     Route: 048
     Dates: start: 20040827
  5. BENADRYL [Suspect]
     Indication: HYPERSENSITIVITY
  6. ROBITUSSIN GUAIFENESIN SYRUP COUGH MEDICINE (GUAIFENESIN) [Suspect]
     Indication: HYPERSENSITIVITY
  7. ESTROGEN [Concomitant]

REACTIONS (3)
  - BLOOD PRESSURE INCREASED [None]
  - DYSSTASIA [None]
  - HYPERSENSITIVITY [None]
